FAERS Safety Report 22830429 (Version 4)
Quarter: 2023Q4

REPORT INFORMATION
  Report Type: Report from Study
  Country: TR (occurrence: None)
  Receive Date: 20230817
  Receipt Date: 20231004
  Transmission Date: 20240109
  Serious: Yes (Hospitalization)
  Sender: FDA-Public Use
  Company Number: TR-ROCHE-3327029

PATIENT
  Age: 64 Year
  Sex: Male
  Weight: 79 kg

DRUGS (24)
  1. RITUXIMAB [Suspect]
     Active Substance: RITUXIMAB
     Indication: B-cell lymphoma
     Dosage: AS PER PROTOCOL, DAY 1 OF EACH CYCLE FOR 8 CYCLES (CYCLE LENGTH = 14 DAYS?ON 27/MAR/2023, 06/JUL/202
     Route: 041
     Dates: start: 20230327
  2. GEMCITABINE [Suspect]
     Active Substance: GEMCITABINE
     Indication: B-cell lymphoma
     Dosage: AS PER PROTOCOL, DAY 1 OF EACH CYCLE FOR 8 CYCLES (CYCLE LENGTH = 14 DAYS)?ON 27/MAR/2023, MOST RECE
     Route: 042
     Dates: start: 20230327
  3. OXALIPLATIN [Suspect]
     Active Substance: OXALIPLATIN
     Indication: B-cell lymphoma
     Dosage: AS PER PROTOCOL, DAY 1 OF EACH CYCLE FOR 8 CYCLES (CYCLE LENGTH = 14 DAYS)?ON 27/MAR/2023, MOST RECE
     Route: 042
  4. ELIQUIS [Concomitant]
     Active Substance: APIXABAN
     Indication: Anticoagulant therapy
     Dates: start: 20230227
  5. CORDARONE [Concomitant]
     Active Substance: AMIODARONE HYDROCHLORIDE
     Dates: start: 20230201
  6. BISOPROLOL FUMARATE [Concomitant]
     Active Substance: BISOPROLOL FUMARATE
     Dates: start: 20230129
  7. ANORO ELLIPTA [Concomitant]
     Active Substance: UMECLIDINIUM BROMIDE\VILANTEROL TRIFENATATE
     Indication: Dyspnoea
     Dates: start: 20230227
  8. METHYLPREDNISOLONE [Concomitant]
     Active Substance: METHYLPREDNISOLONE
     Indication: COVID-19
     Dates: start: 20230130
  9. CEFAKS [Concomitant]
     Indication: Infection
     Dates: start: 20230328, end: 20230404
  10. CEFAKS [Concomitant]
     Dates: start: 20230316, end: 20230323
  11. CEFAKS [Concomitant]
     Dates: start: 20230405, end: 20230421
  12. LEVOFLOXACIN [Concomitant]
     Active Substance: LEVOFLOXACIN
     Dates: start: 20230328, end: 20230404
  13. LEVOFLOXACIN [Concomitant]
     Active Substance: LEVOFLOXACIN
     Dates: start: 20230405, end: 20230421
  14. CIPRO [Concomitant]
     Active Substance: CIPROFLOXACIN HYDROCHLORIDE
     Dates: start: 20230316, end: 20230323
  15. ALLOPURINOL [Concomitant]
     Active Substance: ALLOPURINOL
     Dates: start: 20230118
  16. ZYRTEC (TURKEY) [Concomitant]
     Dates: start: 20230509, end: 20230510
  17. DEKORT [Concomitant]
     Active Substance: DEXAMETHASONE
     Route: 042
     Dates: start: 20230327, end: 20230327
  18. DEKORT [Concomitant]
     Active Substance: DEXAMETHASONE
     Route: 042
     Dates: start: 20230410, end: 20230410
  19. DEKORT [Concomitant]
     Active Substance: DEXAMETHASONE
     Route: 042
     Dates: start: 20230424, end: 20230424
  20. DEKORT [Concomitant]
     Active Substance: DEXAMETHASONE
     Route: 042
     Dates: start: 20230508, end: 20230508
  21. TAZERACIN [Concomitant]
     Indication: COVID-19
     Dates: start: 20230517, end: 20230521
  22. STERADIN (TURKEY) [Concomitant]
     Indication: Hypotension
     Dates: start: 20230517, end: 20230529
  23. VALTREX [Concomitant]
     Active Substance: VALACYCLOVIR HYDROCHLORIDE
     Dates: start: 20230508
  24. ONDANSETRON HYDROCHLORIDE [Concomitant]
     Active Substance: ONDANSETRON HYDROCHLORIDE
     Indication: Nausea
     Route: 042
     Dates: start: 20230517, end: 20230517

REACTIONS (2)
  - COVID-19 [Recovered/Resolved]
  - Infection [Recovered/Resolved]

NARRATIVE: CASE EVENT DATE: 20230405
